FAERS Safety Report 6675107-9 (Version None)
Quarter: 2010Q2

REPORT INFORMATION
  Report Type: 
  Country: None (occurrence: None)
  Receive Date: 20100409
  Receipt Date: 20100406
  Transmission Date: 20101027
  Serious: Yes (Life-Threatening, Disabling, Other)
  Sender: FDA-Public Use
  Company Number: GB-ELI_LILLY_AND_COMPANY-GB201004001115

PATIENT
  Age: 50 Year
  Sex: Male
  Weight: 103 kg

DRUGS (6)
  1. BYETTA [Suspect]
     Dosage: 10 UG, 2/D
     Route: 058
     Dates: start: 20090608
  2. ATENOLOL [Concomitant]
     Dosage: UNK, UNKNOWN
     Route: 065
  3. CITALOPRAM HYDROBROMIDE [Concomitant]
     Dosage: UNK, UNKNOWN
     Route: 065
  4. GLICLAZIDE [Concomitant]
     Dosage: UNK, UNKNOWN
     Route: 065
  5. METFORMIN (GLUCOPHAGE) [Concomitant]
     Dosage: UNK, UNKNOWN
     Route: 065
  6. PERINDOPRIL ERBUMINE [Concomitant]
     Dosage: UNK, UNKNOWN
     Route: 065

REACTIONS (5)
  - ABDOMINAL PAIN [None]
  - DYSPEPSIA [None]
  - DYSPHAGIA [None]
  - GASTRIC CANCER [None]
  - WEIGHT DECREASED [None]
